FAERS Safety Report 5013339-6 (Version None)
Quarter: 2006Q2

REPORT INFORMATION
  Report Type: 
  Country: None (occurrence: None)
  Receive Date: 20060530
  Receipt Date: 20060414
  Transmission Date: 20061013
  Serious: No
  Sender: FDA-Public Use
  Company Number: US-GLAXOSMITHKLINE-A0601840A

PATIENT
  Age: 37 Year
  Sex: Female

DRUGS (3)
  1. WELLBUTRIN XL [Suspect]
     Indication: DEPRESSION
     Dosage: 300MG PER DAY
     Route: 048
     Dates: start: 20060403
  2. VICODIN [Concomitant]
  3. PERCOCET [Concomitant]

REACTIONS (3)
  - ANOREXIA [None]
  - DRUG INEFFECTIVE [None]
  - INSOMNIA [None]
